FAERS Safety Report 10753791 (Version 1)
Quarter: 2015Q1

REPORT INFORMATION
  Report Type: Report from Study
  Country: BR (occurrence: BR)
  Receive Date: 20150201
  Receipt Date: 20150201
  Transmission Date: 20150721
  Serious: Yes (Hospitalization)
  Sender: FDA-Public Use
  Company Number: BR-ROCHE-1088056

PATIENT
  Sex: Female
  Weight: 87 kg

DRUGS (13)
  1. METFORMIN [Concomitant]
     Active Substance: METFORMIN HYDROCHLORIDE
  2. GLIMEPIRIDE. [Concomitant]
     Active Substance: GLIMEPIRIDE
  3. METHOTREXATE [Concomitant]
     Active Substance: METHOTREXATE
     Route: 065
  4. ENDOFOLIN [Concomitant]
     Active Substance: FOLIC ACID
     Route: 065
  5. TOCILIZUMAB [Suspect]
     Active Substance: TOCILIZUMAB
     Indication: RHEUMATOID ARTHRITIS
     Route: 042
     Dates: start: 20120130, end: 201407
  6. GLIFAGE XR [Concomitant]
     Active Substance: METFORMIN HYDROCHLORIDE
     Route: 065
  7. AMARYL [Concomitant]
     Active Substance: GLIMEPIRIDE
  8. PURAN [Concomitant]
     Active Substance: LEVOTHYROXINE SODIUM
  9. MIRTAX [Concomitant]
  10. CELEBRA [Concomitant]
     Active Substance: CELECOXIB
  11. SYNTHROID [Concomitant]
     Active Substance: LEVOTHYROXINE SODIUM
  12. JANUVIA [Concomitant]
     Active Substance: SITAGLIPTIN PHOSPHATE
  13. SIMVASTATIN. [Concomitant]
     Active Substance: SIMVASTATIN

REACTIONS (5)
  - Hunger [Unknown]
  - Weight decreased [Recovered/Resolved]
  - Cerebrovascular accident [Unknown]
  - Weight increased [Recovered/Resolved]
  - Sluggishness [Recovered/Resolved]
